FAERS Safety Report 6757922-6 (Version None)
Quarter: 2010Q2

REPORT INFORMATION
  Report Type: 
  Country: None (occurrence: None)
  Receive Date: 20100607
  Receipt Date: 20100521
  Transmission Date: 20101027
  Serious: Yes (Hospitalization)
  Sender: FDA-Public Use
  Company Number: DE-WYE-H15359310

PATIENT
  Age: 80 Year
  Sex: Female
  Weight: 53 kg

DRUGS (12)
  1. PANTOZOL [Suspect]
     Indication: PROPHYLAXIS AGAINST GASTROINTESTINAL ULCER
     Route: 048
     Dates: start: 20090116
  2. METRONIDAZOLE [Suspect]
     Indication: PERINEPHRIC ABSCESS
     Route: 042
     Dates: start: 20091110, end: 20091120
  3. METRONIDAZOLE [Suspect]
     Route: 048
     Dates: start: 20091121, end: 20091208
  4. CEFPODOXIME PROXETIL [Suspect]
     Indication: PERINEPHRIC ABSCESS
     Route: 048
     Dates: start: 20091121, end: 20091208
  5. CITALOPRAM [Concomitant]
     Indication: DEPRESSION
     Route: 048
     Dates: start: 20091110
  6. SPIRONOLACTONE [Concomitant]
     Indication: HYPERTENSION
     Route: 048
  7. FERRO SANOL [Concomitant]
     Indication: IRON DEFICIENCY ANAEMIA
     Route: 048
     Dates: start: 20090116, end: 20091209
  8. TARGIN [Concomitant]
     Indication: PAIN
     Route: 048
     Dates: start: 20091110
  9. DIGITOXIN [Concomitant]
     Indication: ATRIAL FIBRILLATION
     Route: 048
     Dates: start: 20091110
  10. TORSEMIDE [Concomitant]
     Indication: HYPERTENSION
     Route: 048
     Dates: start: 20071101
  11. CEFTRIAXONE [Suspect]
     Route: 042
     Dates: start: 20091110, end: 20091120
  12. METAMIZOLE [Concomitant]
     Indication: PAIN
     Route: 048
     Dates: start: 20091110

REACTIONS (1)
  - CLOSTRIDIUM DIFFICILE COLITIS [None]
